FAERS Safety Report 10048006 (Version 1)
Quarter: 2014Q1

REPORT INFORMATION
  Report Type: Spontaneous
  Country: GB (occurrence: GB)
  Receive Date: 20140331
  Receipt Date: 20140331
  Transmission Date: 20141002
  Serious: Yes (Death, Hospitalization)
  Sender: FDA-Public Use
  Company Number: PHHY2014GB034629

PATIENT
  Sex: Male

DRUGS (3)
  1. MEROPENEM [Suspect]
     Indication: ENTEROBACTER INFECTION
     Route: 042
  2. COLISTIN [Suspect]
     Indication: ENTEROBACTER INFECTION
     Route: 065
  3. TYGACIL [Suspect]
     Indication: ENTEROBACTER INFECTION
     Route: 065

REACTIONS (2)
  - Enterobacter infection [Fatal]
  - Death [Fatal]
